FAERS Safety Report 16608119 (Version 2)
Quarter: 2020Q3

REPORT INFORMATION
  Report Type: Report from Study
  Country: CN (occurrence: CN)
  Receive Date: 20190722
  Receipt Date: 20190726
  Transmission Date: 20201104
  Serious: Yes (Other)
  Sender: FDA-Public Use
  Company Number: CN-ASTELLAS-2019US029336

PATIENT
  Age: 2 Year
  Sex: Male
  Weight: 10 kg

DRUGS (6)
  1. TACROLIMUS. [Suspect]
     Active Substance: TACROLIMUS
     Indication: LIVER TRANSPLANT
     Dosage: 0.25 MG, EVERY 12 HOURS
     Route: 045
  2. TACROLIMUS. [Interacting]
     Active Substance: TACROLIMUS
     Dosage: 0.50 MG, EVERY 12 HOURS
     Route: 045
  3. PHENOBARBITAL SODIUM. [Interacting]
     Active Substance: PHENOBARBITAL SODIUM
     Indication: PRODUCT USED FOR UNKNOWN INDICATION
     Dosage: 0.05 G, UNKNOWN FREQ.
     Route: 030
  4. TACROLIMUS. [Interacting]
     Active Substance: TACROLIMUS
     Dosage: 0.75 MG, EVERY 12 HOURS
     Route: 045
  5. TACROLIMUS. [Interacting]
     Active Substance: TACROLIMUS
     Route: 045
  6. METHYLPREDNISOLONE SODIUM SUCCINATE. [Concomitant]
     Active Substance: METHYLPREDNISOLONE SODIUM SUCCINATE
     Indication: LIVER TRANSPLANT
     Route: 042

REACTIONS (5)
  - Blood pressure decreased [Unknown]
  - Epilepsy [Recovered/Resolved]
  - Immunosuppressant drug level decreased [Recovered/Resolved]
  - Product use issue [Unknown]
  - Drug interaction [Unknown]
